FAERS Safety Report 7537796-6 (Version None)
Quarter: 2011Q2

REPORT INFORMATION
  Report Type: 
  Country: None (occurrence: None)
  Receive Date: 20110609
  Receipt Date: 20110525
  Transmission Date: 20111010
  Serious: No
  Sender: FDA-Public Use
  Company Number: US-B.I. PHARMACEUTICALS,INC./RIDGEFIELD-2011-BP-13957BP

PATIENT
  Sex: Male

DRUGS (10)
  1. METFORMIN HYDROCHLORIDE [Concomitant]
     Indication: DIABETES MELLITUS
     Dosage: 500 MG
     Route: 048
  2. WELCHOL [Concomitant]
     Dosage: 1875 MG
     Route: 048
  3. METOPROLOL SUCCINATE [Concomitant]
     Indication: HYPERTENSION
     Dosage: 150 MG
     Route: 048
  4. OMEGA 3 VITAMINS [Concomitant]
     Dosage: 1000 MG
     Route: 048
  5. AVAPRO [Concomitant]
     Indication: HYPERTENSION
     Dosage: 300 MG
     Route: 048
  6. TYLENOL-500 [Concomitant]
     Indication: ARTHRITIS
     Route: 048
  7. HYDROCHLOROTHIAZIDE [Concomitant]
     Dosage: 12.5 MG
     Route: 048
  8. PRADAXA [Suspect]
     Indication: ATRIAL FIBRILLATION
     Dosage: 300 MG
     Route: 048
     Dates: start: 20110518
  9. NIASPAN [Concomitant]
     Dosage: 500 MG
     Route: 048
  10. ASPIRIN [Concomitant]
     Dosage: 162 MG
     Route: 048

REACTIONS (3)
  - ARTHRITIS [None]
  - BACK PAIN [None]
  - PAIN IN EXTREMITY [None]
